FAERS Safety Report 8422192-X (Version None)
Quarter: 2012Q2

REPORT INFORMATION
  Report Type: 
  Country: None (occurrence: None)
  Receive Date: 20120323
  Receipt Date: 20110224
  Transmission Date: 20120825
  Serious: Yes (Other)
  Sender: FDA-Public Use
  Company Number: 163-21880-11023135

PATIENT
  Age: 73 Year
  Sex: Female

DRUGS (5)
  1. LISINOPRIL [Concomitant]
  2. REVLIMID [Suspect]
     Indication: MULTIPLE MYELOMA
     Dosage: 10 MG, 1 IN 1 D, PO
     Route: 048
     Dates: start: 20050106
  3. VERAPAMIL [Concomitant]
  4. PRAVASTATIN [Concomitant]
  5. ALPRAZOLAM [Concomitant]

REACTIONS (2)
  - NEUTROPENIA [None]
  - ANAEMIA [None]
